FAERS Safety Report 16956151 (Version 1)
Quarter: 2019Q4

REPORT INFORMATION
  Report Type: Other
  Country: DE (occurrence: DE)
  Receive Date: 20191024
  Receipt Date: 20191024
  Transmission Date: 20200122
  Serious: Yes (Other)
  Sender: FDA-Public Use
  Company Number: DE-HARMONY BIOSCIENCES-2019HMY00010

PATIENT
  Age: 48 Year
  Sex: Male

DRUGS (4)
  1. WAKIX [Suspect]
     Active Substance: PITOLISANT HYDROCHLORIDE
     Indication: NARCOLEPSY
     Dosage: 36 MG, 1X/DAY
     Route: 048
     Dates: end: 20190907
  2. BUPROPION. [Concomitant]
     Active Substance: BUPROPION
  3. MODAFINIL. [Concomitant]
     Active Substance: MODAFINIL
     Dosage: UNK
     Dates: start: 201612
  4. SERTRALINE [Concomitant]
     Active Substance: SERTRALINE HYDROCHLORIDE
     Dosage: UNK
     Dates: start: 20190910

REACTIONS (4)
  - Restlessness [Recovered/Resolved]
  - Irritability [Recovered/Resolved]
  - Belligerence [Recovered/Resolved]
  - Suicidal ideation [Recovered/Resolved]

NARRATIVE: CASE EVENT DATE: 20190726
